FAERS Safety Report 7914892-2 (Version None)
Quarter: 2011Q4

REPORT INFORMATION
  Report Type: 
  Country: None (occurrence: None)
  Receive Date: 20111115
  Receipt Date: 20111104
  Transmission Date: 20120403
  Serious: Yes (Other)
  Sender: FDA-Public Use
  Company Number: ES-ROCHE-1012667

PATIENT
  Age: 32 Year
  Sex: Female
  Weight: 69 kg

DRUGS (5)
  1. ANTIHISTAMINES (UNK INGREDIENTS) [Concomitant]
  2. STEROIDS NOS [Concomitant]
  3. XOLAIR [Suspect]
     Dosage: REGIMEN 2
  4. METHOTREXATE [Concomitant]
  5. XOLAIR [Suspect]
     Indication: DERMATITIS ATOPIC
     Route: 058

REACTIONS (1)
  - ECZEMA HERPETICUM [None]
